FAERS Safety Report 5329599-8 (Version None)
Quarter: 2007Q2

REPORT INFORMATION
  Report Type: 
  Country: None (occurrence: None)
  Receive Date: 20070227
  Receipt Date: 20060316
  Transmission Date: 20071010
  Serious: Yes (Hospitalization)
  Sender: FDA-Public Use
  Company Number: 430201

PATIENT
  Age: 40 Year
  Sex: Female
  Weight: 59.9 kg

DRUGS (4)
  1. ACCUTANE [Suspect]
     Indication: ACNE CYSTIC
     Dosage: 40 MG DAILY ORAL
     Route: 048
     Dates: start: 19991016, end: 19991216
  2. SPIRONOLACTONE [Suspect]
     Indication: ACNE
     Dates: start: 19991213
  3. ORTHO TRI-CYCLEN [Concomitant]
  4. CLARINEX (DESLORATADINE/LORATADINE/PSEUDOEPHEDRINE HYDROCHLORIDE) [Concomitant]

REACTIONS (12)
  - ASTHENIA [None]
  - COLITIS [None]
  - COLITIS ULCERATIVE [None]
  - CROHN'S DISEASE [None]
  - DIZZINESS [None]
  - FATIGUE [None]
  - GASTROINTESTINAL DISORDER [None]
  - HEADACHE [None]
  - INFLAMMATORY BOWEL DISEASE [None]
  - NIGHT BLINDNESS [None]
  - PYREXIA [None]
  - VISION BLURRED [None]
